FAERS Safety Report 12865223 (Version 2)
Quarter: 2016Q4

REPORT INFORMATION
  Report Type: Spontaneous
  Country: PL (occurrence: PL)
  Receive Date: 20161020
  Receipt Date: 20161110
  Transmission Date: 20170207
  Serious: Yes (Other)
  Sender: FDA-Public Use
  Company Number: PL-SUN PHARMACEUTICAL INDUSTRIES LTD-2016RR-125882

PATIENT
  Age: 38 Year
  Sex: Female

DRUGS (5)
  1. RUTINOSCORBIN [Concomitant]
     Indication: SINUSITIS
     Route: 065
  2. LACIDAR [Concomitant]
     Indication: SINUSITIS
     Route: 065
  3. GLIMBAX [Concomitant]
     Indication: SINUSITIS
     Route: 065
  4. CIRRUS [Concomitant]
     Active Substance: CETIRIZINE HYDROCHLORIDE\PSEUDOEPHEDRINE HYDROCHLORIDE
     Indication: SINUSITIS
     Route: 065
  5. CEROXIM TABLETS [Suspect]
     Active Substance: CEFUROXIME AXETIL
     Indication: SINUSITIS
     Dosage: 500 MG, BID
     Route: 048
     Dates: start: 20160913, end: 20160913

REACTIONS (2)
  - Dyspnoea [Recovered/Resolved]
  - Localised oedema [Recovered/Resolved]

NARRATIVE: CASE EVENT DATE: 20160913
